FAERS Safety Report 7485212-5 (Version None)
Quarter: 2011Q2

REPORT INFORMATION
  Report Type: 
  Country: None (occurrence: None)
  Receive Date: 20110517
  Receipt Date: 20101210
  Transmission Date: 20111010
  Serious: Yes (Hospitalization, Other)
  Sender: FDA-Public Use
  Company Number: US-BAYER-201033893NA

PATIENT
  Age: 23 Year
  Sex: Female
  Weight: 62.727 kg

DRUGS (12)
  1. DROSPIRENONE AND ETHINYL ESTRADIOL [Suspect]
     Indication: PRODUCT USED FOR UNKNOWN INDICATION
     Route: 048
     Dates: start: 20070101, end: 20080101
  2. CEPHALEXIN [Concomitant]
     Route: 048
     Dates: start: 20071101
  3. AZITHROMYCIN [Concomitant]
     Dosage: PACK
     Route: 048
     Dates: start: 20071207
  4. PERMETHRIN [Concomitant]
     Route: 048
     Dates: start: 20100111, end: 20100118
  5. YASMIN [Suspect]
     Indication: PRODUCT USED FOR UNKNOWN INDICATION
     Route: 048
     Dates: start: 20070101, end: 20080101
  6. PERMETHRIN [Concomitant]
     Route: 061
     Dates: start: 20080111
  7. SULFAMETHOXAZOLE AND TRIMETHOPRIM [Concomitant]
     Dosage: 800/160 TABS
     Route: 048
     Dates: start: 20080111
  8. HYDROCODONE BITARTRATE AND ACETAMINOPHEN [Concomitant]
     Dosage: 5MG/500MG -  1 OR 2 TABS Q4-6HR PRN
     Route: 048
     Dates: start: 20071024
  9. PROMETHEGAN [Concomitant]
     Route: 054
     Dates: start: 20071101
  10. YAZ [Suspect]
     Indication: PRODUCT USED FOR UNKNOWN INDICATION
     Route: 048
     Dates: start: 20070101, end: 20080101
  11. CEPHALEXIN [Concomitant]
     Route: 048
     Dates: start: 20071024
  12. METOCLOPRAMIDE [Concomitant]
     Route: 048
     Dates: start: 20071024

REACTIONS (9)
  - VOMITING [None]
  - CHOLECYSTITIS ACUTE [None]
  - ABDOMINAL PAIN [None]
  - BILIARY COLIC [None]
  - ABDOMINAL TENDERNESS [None]
  - CHOLELITHIASIS [None]
  - INJURY [None]
  - PREGNANCY ON CONTRACEPTIVE [None]
  - NAUSEA [None]
